FAERS Safety Report 7479386-X (Version None)
Quarter: 2011Q2

REPORT INFORMATION
  Report Type: 
  Country: None (occurrence: None)
  Receive Date: 20110513
  Receipt Date: 20110511
  Transmission Date: 20111010
  Serious: Yes (Hospitalization, Other)
  Sender: FDA-Public Use
  Company Number: JP-PFIZER INC-2010094415

PATIENT
  Age: 59 Year
  Sex: Male
  Weight: 49 kg

DRUGS (10)
  1. CYTOTEC [Concomitant]
     Dosage: UNK
     Route: 048
  2. LYRICA [Suspect]
     Dosage: 75 MG, 3X/DAY
     Route: 048
  3. VOLTAREN-XR [Concomitant]
  4. LYRICA [Suspect]
     Dosage: 150 MG, 2X/DAY
     Route: 048
  5. LYRICA [Suspect]
     Dosage: 75 MG, 2X/DAY
     Route: 048
  6. TRYPTANOL [Concomitant]
     Dosage: 10 MG, 2X/DAY
     Route: 048
  7. FAMOTIDINE [Concomitant]
     Dosage: UNK
     Route: 048
  8. LYRICA [Suspect]
     Indication: POST HERPETIC NEURALGIA
     Dosage: 75 MG, 1X/DAY
     Route: 048
     Dates: start: 20100601
  9. TRYPTANOL [Concomitant]
     Dosage: 10 MG, 3X/DAY
     Route: 048
  10. METHYCOBAL [Concomitant]
     Dosage: UNK
     Route: 048

REACTIONS (2)
  - HYPERKALAEMIA [None]
  - RENAL IMPAIRMENT [None]
